FAERS Safety Report 7742873-0 (Version None)
Quarter: 2011Q3

REPORT INFORMATION
  Report Type: 
  Country: None (occurrence: None)
  Receive Date: 20110912
  Receipt Date: 20110830
  Transmission Date: 20111222
  Serious: Yes (Hospitalization)
  Sender: FDA-Public Use
  Company Number: JP-ELI_LILLY_AND_COMPANY-JP201107003968

PATIENT
  Age: 85 Year
  Sex: Female

DRUGS (2)
  1. FORTEO [Suspect]
     Dosage: UNK
     Route: 058
     Dates: start: 20110831
  2. FORTEO [Suspect]
     Dosage: UNK
     Route: 058
     Dates: start: 20110412, end: 20110801

REACTIONS (2)
  - INJECTION SITE HAEMATOMA [None]
  - DECREASED APPETITE [None]
